FAERS Safety Report 14212068 (Version 4)
Quarter: 2018Q4

REPORT INFORMATION
  Report Type: Spontaneous
  Country: US (occurrence: US)
  Receive Date: 20171121
  Receipt Date: 20181211
  Transmission Date: 20190204
  Serious: Yes (Hospitalization, Other)
  Sender: FDA-Public Use
  Company Number: US-DSJP-DSU-2017-138640

PATIENT

DRUGS (1)
  1. BENICAR HCT [Suspect]
     Active Substance: HYDROCHLOROTHIAZIDE\OLMESARTAN MEDOXOMIL
     Indication: HYPERTENSION
     Dosage: 20-12.5 MG, QD
     Route: 048
     Dates: end: 20170711

REACTIONS (6)
  - Peritonitis [Recovered/Resolved]
  - Diverticulitis [Not Recovered/Not Resolved]
  - Umbilical hernia [Recovered/Resolved]
  - Diverticular perforation [Recovered/Resolved]
  - Sprue-like enteropathy [Recovered/Resolved]
  - Constipation [Recovering/Resolving]

NARRATIVE: CASE EVENT DATE: 20100909
